FAERS Safety Report 15316795 (Version 1)
Quarter: 2018Q3

REPORT INFORMATION
  Report Type: Spontaneous
  Country: FR (occurrence: FR)
  Receive Date: 20180824
  Receipt Date: 20180824
  Transmission Date: 20181010
  Serious: Yes (Life-Threatening, Other)
  Sender: FDA-Public Use
  Company Number: FR-SA-2018SA229034

PATIENT
  Age: 64 Year
  Sex: Female
  Weight: 83.4 kg

DRUGS (11)
  1. LACTULOSE. [Concomitant]
     Active Substance: LACTULOSE
     Route: 048
  2. PANTOPRAZOLE [Concomitant]
     Active Substance: PANTOPRAZOLE
     Route: 048
  3. TACROLIMUS MONOHYDRATE [Concomitant]
     Active Substance: TACROLIMUS
     Dates: end: 20180806
  4. CASPOFUNGINE [Concomitant]
     Active Substance: CASPOFUNGIN
  5. TAZOCILLINE [Concomitant]
     Active Substance: PIPERACILLIN SODIUM\TAZOBACTAM SODIUM
     Route: 041
  6. BUDESONIDE. [Concomitant]
     Active Substance: BUDESONIDE
     Route: 048
  7. INSULIN [Concomitant]
     Active Substance: INSULIN NOS
     Route: 058
  8. SOLUPRED [METHYLPREDNISOLONE SODIUM SUCCINATE] [Concomitant]
     Route: 048
  9. THYMOGLOBULINE [Suspect]
     Active Substance: LAPINE T-LYMPHOCYTE IMMUNE GLOBULIN
     Indication: PROPHYLAXIS AGAINST TRANSPLANT REJECTION
     Route: 041
     Dates: start: 20180806, end: 20180806
  10. HEPARIN [Concomitant]
     Active Substance: HEPARIN SODIUM
     Route: 041
  11. OXYNORM [Concomitant]
     Active Substance: OXYCODONE HYDROCHLORIDE

REACTIONS (4)
  - Pyrexia [Recovered/Resolved]
  - Livedo reticularis [Recovered/Resolved]
  - Vasoplegia syndrome [Recovered/Resolved]
  - Tachycardia [Recovered/Resolved]

NARRATIVE: CASE EVENT DATE: 20180806
